FAERS Safety Report 6069334-1 (Version None)
Quarter: 2009Q1

REPORT INFORMATION
  Report Type: 
  Country: None (occurrence: None)
  Receive Date: 20090206
  Receipt Date: 20090202
  Transmission Date: 20090719
  Serious: Yes (Other)
  Sender: FDA-Public Use
  Company Number: US-ASTRAZENECA-2009UW02942

PATIENT
  Sex: Female
  Weight: 72.6 kg

DRUGS (4)
  1. CRESTOR [Suspect]
     Route: 048
     Dates: start: 20081029, end: 20081229
  2. TRENTAL [Concomitant]
     Route: 048
  3. LASIX [Concomitant]
     Route: 048
  4. SYNTHROID [Concomitant]
     Route: 048

REACTIONS (6)
  - ANORECTAL DISORDER [None]
  - ARTHRALGIA [None]
  - CHROMATURIA [None]
  - ERYTHROCYANOSIS [None]
  - MYALGIA [None]
  - PARAESTHESIA [None]
